APPROVED DRUG PRODUCT: HICON
Active Ingredient: SODIUM IODIDE I-131
Strength: 1-500mCi/0.5ML
Dosage Form/Route: SOLUTION;ORAL
Application: N021305 | Product #003
Applicant: JUBILANT DRAXIMAGE INC DBA JUBILANT RADIOPHARMA
Approved: Jan 24, 2003 | RLD: No | RS: No | Type: DISCN